FAERS Safety Report 7197124-5 (Version None)
Quarter: 2010Q4

REPORT INFORMATION
  Report Type: 
  Country: None (occurrence: None)
  Receive Date: 20101224
  Receipt Date: 20101213
  Transmission Date: 20110411
  Serious: Yes (Hospitalization, Other)
  Sender: FDA-Public Use
  Company Number: PHHY2010DE74690

PATIENT
  Age: 58 Year
  Sex: Male

DRUGS (26)
  1. LEPONEX [Interacting]
     Indication: MANIA
     Dosage: UPTO 700 MG/DAILY
     Route: 048
     Dates: start: 19950101, end: 20090828
  2. LEPONEX [Interacting]
     Indication: HALLUCINATION
     Dosage: 0 MG
     Route: 048
     Dates: start: 20090828, end: 20090830
  3. LEPONEX [Interacting]
     Dosage: 50-600 MG/ DAILY
     Route: 048
     Dates: start: 20090901, end: 20091004
  4. LEPONEX [Interacting]
     Dosage: 700 MG/DAILY
     Route: 048
     Dates: start: 20091005, end: 20091008
  5. LEPONEX [Interacting]
     Dosage: 750 MG/DAILY
     Route: 048
     Dates: start: 20091009, end: 20091011
  6. LEPONEX [Interacting]
     Dosage: 800 MG/DAILY
     Route: 048
     Dates: start: 20091012, end: 20091104
  7. LEPONEX [Interacting]
     Dosage: 600 MG/DAILY
     Route: 048
     Dates: start: 20091105, end: 20091108
  8. LEPONEX [Interacting]
     Dosage: 700 MG/DAILY
     Dates: start: 20091109, end: 20091113
  9. LEPONEX [Interacting]
     Dosage: 800 MG/DAILY
     Route: 048
     Dates: start: 20091114
  10. RISPERDAL [Interacting]
     Dosage: 2 MG/DAILY
     Route: 048
     Dates: start: 20091028
  11. RISPERDAL [Interacting]
     Dosage: 3 MG/DAY
     Route: 048
     Dates: start: 20091029
  12. RISPERDAL [Interacting]
     Dosage: 4 MG/DAILY
     Route: 048
     Dates: start: 20091030, end: 20091101
  13. RISPERDAL [Interacting]
     Dosage: 5 MG/DAILY
     Route: 048
     Dates: start: 20091102, end: 20091103
  14. RISPERDAL [Interacting]
     Dosage: 6 MG/DAILY
     Route: 048
     Dates: start: 20091104
  15. MELNEURIN [Suspect]
     Dosage: 25 MG /DAILY
     Route: 048
     Dates: start: 20090829, end: 20090903
  16. MELNEURIN [Suspect]
     Dosage: 50 MG /DAILY
     Route: 048
     Dates: start: 20090904, end: 20091006
  17. MELNEURIN [Suspect]
     Dosage: 200 MG /DAILY
     Route: 048
     Dates: start: 20091007, end: 20091104
  18. MELNEURIN [Suspect]
     Dosage: 125 MG /DAILY
     Route: 048
     Dates: start: 20091110, end: 20091124
  19. MELNEURIN [Suspect]
     Dosage: 175 MG /DAILY
     Route: 048
     Dates: start: 20091125
  20. MELNEURIN [Suspect]
     Dosage: 200 MG /DAILY
     Route: 048
     Dates: start: 20091126
  21. TAVOR (FLUCONAZOLE) [Concomitant]
     Dosage: UP TO 6 MG /DAY
     Route: 048
     Dates: start: 20090828, end: 20101101
  22. TAVOR (FLUCONAZOLE) [Concomitant]
     Dosage: 1 MG/DAY
     Route: 048
     Dates: start: 20091102, end: 20091103
  23. TAVOR (FLUCONAZOLE) [Concomitant]
     Dosage: 0.5  MG/DAY
     Route: 048
     Dates: start: 20091104
  24. TAVOR (FLUCONAZOLE) [Concomitant]
     Dosage: 3  MG/DAY
     Route: 048
     Dates: start: 20091105, end: 20091107
  25. TAVOR (FLUCONAZOLE) [Concomitant]
     Dosage: 4 MG/DAY
     Route: 048
     Dates: start: 20091108
  26. TAVOR (FLUCONAZOLE) [Concomitant]
     Dosage: 4-0  MG/DAY
     Route: 048
     Dates: start: 20091109, end: 20091127

REACTIONS (7)
  - DELIRIUM [None]
  - DRUG INEFFECTIVE [None]
  - DRUG INTERACTION [None]
  - HYPONATRAEMIA [None]
  - OVERDOSE [None]
  - PARANOIA [None]
  - POLYDIPSIA [None]
